FAERS Safety Report 8483575-5 (Version None)
Quarter: 2012Q3

REPORT INFORMATION
  Report Type: 
  Country: None (occurrence: None)
  Receive Date: 20120702
  Receipt Date: 20120625
  Transmission Date: 20120928
  Serious: Yes (Hospitalization, Disabling, Other)
  Sender: FDA-Public Use
  Company Number: US-MERCK-1108USA01357

PATIENT
  Age: 53 Year
  Sex: Female
  Weight: 91 kg

DRUGS (17)
  1. FOSAMAX [Suspect]
     Indication: OSTEOPENIA
     Route: 048
     Dates: start: 20010101, end: 20080101
  2. FOSAMAX [Suspect]
     Route: 048
     Dates: start: 20051214
  3. CALCIUM CARBONATE [Concomitant]
     Route: 065
     Dates: start: 20010101
  4. GLUCOSAMINE [Concomitant]
     Route: 065
     Dates: start: 20010101
  5. CORTICOSTEROIDS (UNSPECIFIED) [Concomitant]
     Route: 065
     Dates: start: 20000101, end: 20090101
  6. FOSAMAX [Suspect]
     Indication: OSTEOPOROSIS
     Route: 048
     Dates: start: 20010101, end: 20080101
  7. FOSAMAX [Suspect]
     Route: 048
     Dates: start: 20080505
  8. RECLAST [Concomitant]
     Indication: OSTEOPOROSIS
     Route: 051
     Dates: start: 20090101
  9. VITAMINS (UNSPECIFIED) [Concomitant]
     Route: 065
     Dates: start: 20010101
  10. OMEGA-3 MARINE TRIGLYCERIDES [Concomitant]
     Route: 065
     Dates: start: 20010101
  11. FOSAMAX [Suspect]
     Route: 048
     Dates: start: 20051214
  12. RECLAST [Concomitant]
     Indication: OSTEOPENIA
     Route: 051
     Dates: start: 20090101
  13. FOSAMAX [Suspect]
     Route: 048
     Dates: start: 20080505
  14. NEXIUM [Concomitant]
     Route: 065
     Dates: start: 20060815, end: 20071119
  15. FOSAMAX PLUS D [Suspect]
     Indication: OSTEOPENIA
     Route: 065
     Dates: start: 20010101, end: 20080501
  16. FOSAMAX PLUS D [Suspect]
     Indication: OSTEOPOROSIS
     Route: 065
     Dates: start: 20010101, end: 20080501
  17. VITAMIN D (UNSPECIFIED) [Concomitant]
     Route: 065
     Dates: start: 20010101

REACTIONS (51)
  - SCIATICA [None]
  - FIBULA FRACTURE [None]
  - DENTAL NECROSIS [None]
  - CHEST DISCOMFORT [None]
  - DEPRESSION [None]
  - EAR PAIN [None]
  - OSTEOARTHRITIS [None]
  - CATARACT [None]
  - URINARY TRACT INFECTION [None]
  - PAIN [None]
  - BACK PAIN [None]
  - HYPERCHOLESTEROLAEMIA [None]
  - SALIVARY GLAND CALCULUS [None]
  - IMPAIRED HEALING [None]
  - STRESS FRACTURE [None]
  - ADVERSE DRUG REACTION [None]
  - DIARRHOEA [None]
  - ARTHRALGIA [None]
  - VERTIGO [None]
  - HYPOTHYROIDISM [None]
  - FALL [None]
  - DIZZINESS [None]
  - DYSPNOEA [None]
  - SLEEP APNOEA SYNDROME [None]
  - FEMUR FRACTURE [None]
  - HAEMORRHAGIC ANAEMIA [None]
  - LOW TURNOVER OSTEOPATHY [None]
  - MUSCLE INJURY [None]
  - SPINAL OSTEOARTHRITIS [None]
  - BURSITIS [None]
  - OBESITY [None]
  - INAPPROPRIATE SCHEDULE OF DRUG ADMINISTRATION [None]
  - ARTHRITIS [None]
  - BACK DISORDER [None]
  - TIBIA FRACTURE [None]
  - PERIODONTITIS [None]
  - WEIGHT INCREASED [None]
  - FATIGUE [None]
  - NEPHROLITHIASIS [None]
  - TENDONITIS [None]
  - CHEST PAIN [None]
  - OSTEOPOROSIS [None]
  - ABDOMINAL DISTENSION [None]
  - MIDDLE EAR EFFUSION [None]
  - SIALOADENITIS [None]
  - HYPERLIPIDAEMIA [None]
  - EAR DISCOMFORT [None]
  - CONTUSION [None]
  - DRUG INTOLERANCE [None]
  - ORAL DISORDER [None]
  - LYMPHADENITIS [None]
